FAERS Safety Report 17068680 (Version 1)
Quarter: 2019Q4

REPORT INFORMATION
  Report Type: Spontaneous
  Country: US (occurrence: US)
  Receive Date: 20191123
  Receipt Date: 20191123
  Transmission Date: 20200122
  Serious: Yes (Death, Life-Threatening, Hospitalization)
  Sender: FDA-Public Use
  Company Number: US-TEVA-2019-US-1139201

PATIENT
  Sex: Male

DRUGS (2)
  1. AMIODARONE HYDROCHLORIDE. [Suspect]
     Active Substance: AMIODARONE HYDROCHLORIDE
     Indication: ATRIAL FIBRILLATION
     Route: 048
  2. AMIODARONE HYDROCHLORIDE TEVA [Suspect]
     Active Substance: AMIODARONE HYDROCHLORIDE
     Indication: ATRIAL FIBRILLATION
     Route: 048

REACTIONS (17)
  - Pneumonia [Unknown]
  - Bilevel positive airway pressure [Unknown]
  - Fatigue [Unknown]
  - Haemorrhage [Unknown]
  - Impaired quality of life [Unknown]
  - Visual impairment [Unknown]
  - Respiratory failure [Unknown]
  - Dyspnoea [Unknown]
  - Pulmonary fibrosis [Unknown]
  - Respiratory distress [Unknown]
  - Peripheral swelling [Unknown]
  - Anxiety [Unknown]
  - Cardiac failure congestive [Unknown]
  - Anaemia [Unknown]
  - Off label use [Unknown]
  - Heart rate increased [Unknown]
  - Cough [Unknown]

NARRATIVE: CASE EVENT DATE: 201501
